FAERS Safety Report 9415237 (Version 1)
Quarter: 2013Q3

REPORT INFORMATION
  Report Type: Report from Study
  Country: BR (occurrence: BR)
  Receive Date: 20130723
  Receipt Date: 20130723
  Transmission Date: 20140515
  Serious: Yes (Hospitalization, Other)
  Sender: FDA-Public Use
  Company Number: PHHY2013BR077689

PATIENT
  Sex: Male
  Weight: 42 kg

DRUGS (1)
  1. ACLASTA [Suspect]
     Indication: OSTEOPOROSIS
     Dosage: 5 MG, UNK
     Route: 042
     Dates: start: 2012

REACTIONS (7)
  - Decreased appetite [Not Recovered/Not Resolved]
  - Pleural effusion [Unknown]
  - Cognitive disorder [Not Recovered/Not Resolved]
  - Abasia [Not Recovered/Not Resolved]
  - Nervousness [Not Recovered/Not Resolved]
  - Weight decreased [Not Recovered/Not Resolved]
  - Osteoporosis [Unknown]
